FAERS Safety Report 6988167-2 (Version None)
Quarter: 2010Q3

REPORT INFORMATION
  Report Type: 
  Country: None (occurrence: None)
  Receive Date: 20100916
  Receipt Date: 20100914
  Transmission Date: 20110219
  Serious: Yes (Death)
  Sender: FDA-Public Use
  Company Number: IT-ROCHE-695712

PATIENT
  Sex: Female

DRUGS (3)
  1. AVASTIN [Suspect]
     Indication: LUNG ADENOCARCINOMA METASTATIC
     Dosage: FREQUENCY REPORTED AS CYCLE
     Route: 042
     Dates: start: 20100323, end: 20100323
  2. XELODA [Concomitant]
     Indication: PRODUCT USED FOR UNKNOWN INDICATION
     Route: 048
  3. ENDOXAN [Concomitant]
     Dosage: DRUG NAME REPORTED AS CYCLOPHOSPHAMIDE/ENDOXAN BAXTER
     Route: 048

REACTIONS (2)
  - INTESTINAL PERFORATION [None]
  - LUNG ADENOCARCINOMA METASTATIC [None]
